FAERS Safety Report 6984315-9 (Version None)
Quarter: 2010Q3

REPORT INFORMATION
  Report Type: 
  Country: None (occurrence: None)
  Receive Date: 20100915
  Receipt Date: 20100909
  Transmission Date: 20110219
  Serious: Yes (Death, Life-Threatening, Hospitalization)
  Sender: FDA-Public Use
  Company Number: US-US-EMD SERONO, INC.-232454J10USA

PATIENT
  Sex: Female

DRUGS (1)
  1. REBIF [Suspect]
     Indication: MULTIPLE SCLEROSIS
     Route: 058
     Dates: start: 20071127, end: 20100815

REACTIONS (5)
  - CHOLECYSTITIS INFECTIVE [None]
  - CLOSTRIDIAL INFECTION [None]
  - HYPERSENSITIVITY [None]
  - SEPSIS [None]
  - STAPHYLOCOCCAL INFECTION [None]
